FAERS Safety Report 8711494 (Version 5)
Quarter: 2013Q3

REPORT INFORMATION
  Report Type: Spontaneous
  Country: NL (occurrence: None)
  Receive Date: 20120723
  Receipt Date: 20130917
  Transmission Date: 20140515
  Serious: Yes (Hospitalization)
  Sender: FDA-Public Use
  Company Number: ACO_31017_2012

PATIENT
  Age: 56 Year
  Sex: Male

DRUGS (3)
  1. AMPYRA [Suspect]
     Indication: MULTIPLE SCLEROSIS
     Dosage: 10 MG, BID, ORAL
     Route: 048
     Dates: start: 20120405
  2. MOVICOLON [Concomitant]
  3. TOLTERODINE TARTRATE [Concomitant]

REACTIONS (3)
  - Transurethral prostatectomy [None]
  - Bladder disorder [None]
  - Prostatic specific antigen increased [None]
